FAERS Safety Report 9434001 (Version 1)
Quarter: 2013Q3

REPORT INFORMATION
  Report Type: Spontaneous
  Country: US (occurrence: US)
  Receive Date: 20130801
  Receipt Date: 20130801
  Transmission Date: 20140515
  Serious: No
  Sender: FDA-Public Use
  Company Number: US-009507513-1307USA013827

PATIENT
  Sex: Female

DRUGS (1)
  1. NUVARING [Suspect]
     Indication: CONTRACEPTION
     Dosage: DOSE: 1 RING FOR 3 WEEKS
     Route: 067
     Dates: end: 201305

REACTIONS (4)
  - Unintended pregnancy [Unknown]
  - Mood swings [Unknown]
  - Abdominal pain upper [Unknown]
  - Headache [Unknown]
